FAERS Safety Report 10171045 (Version 1)
Quarter: 2014Q2

REPORT INFORMATION
  Report Type: Report from Study
  Country: JP (occurrence: JP)
  Receive Date: 20140514
  Receipt Date: 20140514
  Transmission Date: 20141212
  Serious: Yes (Death)
  Sender: FDA-Public Use
  Company Number: JP-009507513-1405JPN005495

PATIENT
  Age: 44 Year
  Sex: Male

DRUGS (10)
  1. CANCIDAS FOR INTRAVENOUS DRIP INFUSION 50MG [Suspect]
     Indication: SYSTEMIC CANDIDA
     Dosage: 50 MG, QD
     Route: 041
     Dates: start: 20140404, end: 20140424
  2. CANCIDAS FOR INTRAVENOUS DRIP INFUSION 70MG [Suspect]
     Indication: SYSTEMIC CANDIDA
     Dosage: 70 MG, QD
     Route: 041
     Dates: start: 20140403, end: 20140403
  3. ALEVIATIN [Suspect]
     Indication: EPILEPSY
     Dosage: 250 MG, BID
     Route: 051
     Dates: start: 20140407, end: 20140421
  4. ALEVIATIN [Suspect]
     Indication: EPILEPSY
     Dosage: 100 MG, TID
     Route: 048
     Dates: start: 20140422, end: 20140423
  5. FUNGUARD [Concomitant]
     Indication: SYSTEMIC CANDIDA
     Dosage: 150 MG DAILY, DIVIDED DOSE FREQUENCY UNKNOWN
     Route: 051
     Dates: start: 20140326, end: 20140402
  6. MAXIPIME [Concomitant]
     Indication: FEBRILE NEUTROPENIA
     Dosage: 2 G, BID
     Route: 051
     Dates: start: 20140325, end: 20140408
  7. ZANTAC [Concomitant]
     Indication: PROPHYLAXIS
     Dosage: 100 MG, BID
     Route: 051
     Dates: start: 20140305, end: 20140417
  8. VANCOMYCIN [Concomitant]
     Indication: STAPHYLOCOCCAL SEPSIS
     Dosage: 750 MG, BID
     Route: 051
     Dates: start: 20140326, end: 20140410
  9. LYRICA [Concomitant]
     Indication: NEUROPATHY PERIPHERAL
     Dosage: 75 MG, BID
     Route: 048
     Dates: start: 20140410, end: 20140412
  10. LYRICA [Concomitant]
     Dosage: 150 MG, BID
     Route: 048
     Dates: start: 20140413, end: 20140416

REACTIONS (4)
  - Altered state of consciousness [Fatal]
  - Non-Hodgkin^s lymphoma [Fatal]
  - Pyrexia [Recovered/Resolved]
  - Hepatic function abnormal [Not Recovered/Not Resolved]
